FAERS Safety Report 6598312-9 (Version None)
Quarter: 2010Q1

REPORT INFORMATION
  Report Type: 
  Country: None (occurrence: None)
  Receive Date: 20100224
  Receipt Date: 20050308
  Transmission Date: 20100710
  Serious: No
  Sender: FDA-Public Use
  Company Number: US-ALLERGAN-200502319

PATIENT
  Age: 38 Year
  Sex: Female
  Weight: 68.182 kg

DRUGS (3)
  1. BOTOX COSMETIC [Suspect]
     Indication: SKIN WRINKLING
     Dosage: CROW'S FEET, GLABELLA, FOREHEAD
     Route: 030
     Dates: start: 20040401, end: 20040401
  2. BOTOX COSMETIC [Suspect]
     Dosage: CROW'S FEET, GLABELLA, FOREHEAD
     Route: 030
     Dates: start: 20041001, end: 20041001
  3. ORTHO-NOVUM [Concomitant]
     Indication: CONTRACEPTION

REACTIONS (1)
  - VERTIGO [None]
